FAERS Safety Report 4631821-8 (Version None)
Quarter: 2005Q2

REPORT INFORMATION
  Report Type: 
  Country: None (occurrence: None)
  Receive Date: 20050411
  Receipt Date: 20050330
  Transmission Date: 20051028
  Serious: Yes (Other)
  Sender: FDA-Public Use
  Company Number: PT-JNJFOC-20050304831

PATIENT
  Sex: Male

DRUGS (3)
  1. REMICADE [Suspect]
     Indication: RHEUMATOID ARTHRITIS
     Route: 042
  2. METHOTREXATE [Concomitant]
     Indication: RHEUMATOID ARTHRITIS
     Dosage: VARIED DOSAGES: 10MG;15MG AND 7.5MG.
     Route: 049
  3. DEFLAZACORT [Concomitant]
     Indication: RHEUMATOID ARTHRITIS
     Route: 049

REACTIONS (1)
  - ACUTE MYOCARDIAL INFARCTION [None]
